FAERS Safety Report 8201818-X (Version None)
Quarter: 2012Q1

REPORT INFORMATION
  Report Type: 
  Country: None (occurrence: None)
  Receive Date: 20120312
  Receipt Date: 20120307
  Transmission Date: 20120608
  Serious: Yes (Hospitalization, Other)
  Sender: FDA-Public Use
  Company Number: US-BAYER-201030277NA

PATIENT
  Age: 32 Year
  Sex: Female
  Weight: 70.29 kg

DRUGS (5)
  1. YAZ [Suspect]
     Indication: CONTRACEPTION
  2. YAZ [Suspect]
     Indication: ACNE
     Dosage: 1 TAB
     Route: 048
     Dates: start: 20100218, end: 20100430
  3. ASPIRIN [Concomitant]
     Dosage: 325 MG, UNK
     Dates: start: 20100430
  4. NITROGLYCERIN [Concomitant]
     Dosage: 0.4 MG, UNK
     Dates: start: 20100430
  5. DARVOCET-N 50 [Concomitant]
     Indication: PAIN
     Dosage: 1 TAB EVERY 4 HRS

REACTIONS (1)
  - PULMONARY EMBOLISM [None]
